FAERS Safety Report 12972151 (Version 3)
Quarter: 2016Q4

REPORT INFORMATION
  Report Type: Spontaneous
  Country: IT (occurrence: IT)
  Receive Date: 20161124
  Receipt Date: 20161215
  Transmission Date: 20170207
  Serious: Yes (Death, Life-Threatening, Other)
  Sender: FDA-Public Use
  Company Number: IT-ACCORD-045736

PATIENT
  Age: 69 Year
  Sex: Male

DRUGS (1)
  1. CAPECITABIN ACCORD [Suspect]
     Active Substance: CAPECITABINE
     Indication: RECTAL CANCER
     Dosage: STRENGTH: 500 MG
     Route: 048
     Dates: start: 20160926, end: 20161002

REACTIONS (6)
  - Mucosal inflammation [Fatal]
  - Leukopenia [Unknown]
  - Neutropenia [Unknown]
  - Stomatitis [Unknown]
  - Thrombocytopenia [Unknown]
  - Blood count abnormal [Fatal]

NARRATIVE: CASE EVENT DATE: 20161003
